FAERS Safety Report 5409680-5 (Version None)
Quarter: 2007Q3

REPORT INFORMATION
  Report Type: 
  Country: None (occurrence: None)
  Receive Date: 20070809
  Receipt Date: 20070802
  Transmission Date: 20080115
  Serious: Yes (Hospitalization)
  Sender: FDA-Public Use
  Company Number: JP-ELI_LILLY_AND_COMPANY-JP200705007215

PATIENT
  Age: 59 Year
  Sex: Male
  Weight: 49.6 kg

DRUGS (9)
  1. GEMZAR [Suspect]
     Indication: PANCREATIC CARCINOMA
     Dosage: 1300 MG, OTHER
     Route: 042
     Dates: start: 20070620, end: 20070704
  2. GEMZAR [Suspect]
     Dosage: 1400 MG, OTHER
     Route: 042
     Dates: start: 20070425, end: 20070606
  3. FAMOTIDINE [Concomitant]
     Indication: PROPHYLAXIS AGAINST GASTROINTESTINAL ULCER
     Dosage: 40 MG, DAILY (1/D)
     Route: 048
     Dates: start: 20070411
  4. SELTOUCH [Concomitant]
     Indication: BACK PAIN
     Dosage: 70 MG, DAILY (1/D)
     Route: 062
     Dates: start: 20070419
  5. MAGLAX [Concomitant]
     Indication: CONSTIPATION
     Dosage: 990 MG, DAILY (1/D)
     Route: 048
     Dates: start: 20070422
  6. PURSENNID [Concomitant]
     Indication: CONSTIPATION
     Dosage: 24 MG, DAILY (1/D)
     Route: 048
     Dates: start: 20070422
  7. BERIZYM [Concomitant]
     Indication: DYSPEPSIA
     Dosage: 1.5 G, DAILY (1/D)
     Route: 048
     Dates: start: 20070425
  8. NASEA [Concomitant]
     Indication: PROPHYLAXIS OF NAUSEA AND VOMITING
     Dosage: 0.1 MG, DAILY (1/D)
     Route: 048
     Dates: start: 20070425, end: 20070523
  9. KYTRIL [Concomitant]
     Indication: PROPHYLAXIS OF NAUSEA AND VOMITING
     Dosage: 1 D/F, OTHER
     Route: 042
     Dates: start: 20070425, end: 20070523

REACTIONS (9)
  - ABDOMINAL PAIN LOWER [None]
  - DECREASED APPETITE [None]
  - HEPATIC FUNCTION ABNORMAL [None]
  - MALAISE [None]
  - NEUTROPHIL COUNT DECREASED [None]
  - PANCREATITIS [None]
  - PLATELET COUNT DECREASED [None]
  - PYREXIA [None]
  - WHITE BLOOD CELL COUNT DECREASED [None]
